FAERS Safety Report 9492742 (Version 2)
Quarter: 2013Q3

REPORT INFORMATION
  Report Type: Report from Study
  Country: MW (occurrence: MW)
  Receive Date: 20130830
  Receipt Date: 20130830
  Transmission Date: 20140515
  Serious: Yes (Hospitalization)
  Sender: FDA-Public Use
  Company Number: MW-MERCK-1105USA02975

PATIENT
  Age: 46 Year
  Sex: Male

DRUGS (3)
  1. RALTEGRAVIR POTASSIUM [Suspect]
     Indication: HIV INFECTION
     Dates: start: 20110322, end: 20110518
  2. LOPINAVIR (+) RITONAVIR [Suspect]
     Dosage: UNK
     Dates: start: 20110322, end: 20110518
  3. ELECTROLYTES (UNSPECIFIED) (+) SODIUM LACTATE [Concomitant]
     Dosage: UNK
     Dates: start: 20110517, end: 20110526

REACTIONS (2)
  - Pancreatitis [Recovered/Resolved]
  - Pneumonia bacterial [Recovered/Resolved]
